FAERS Safety Report 7071495-2 (Version None)
Quarter: 2010Q4

REPORT INFORMATION
  Report Type: 
  Country: None (occurrence: None)
  Receive Date: 20101029
  Receipt Date: 20090911
  Transmission Date: 20110411
  Serious: No
  Sender: FDA-Public Use
  Company Number: A0806903A

PATIENT
  Age: 48 Year
  Sex: Male

DRUGS (3)
  1. ADVAIR DISKUS 100/50 [Suspect]
     Indication: ASTHMA
     Dosage: 1PUFF TWICE PER DAY
     Route: 055
     Dates: start: 20020101, end: 20090101
  2. FLOVENT [Suspect]
     Indication: ASTHMA
     Dosage: 90MCG AS REQUIRED
     Route: 055
     Dates: start: 20090906
  3. NO CONCURRENT MEDICATION [Concomitant]

REACTIONS (3)
  - CANDIDIASIS [None]
  - DRUG INEFFECTIVE [None]
  - OVERDOSE [None]
